FAERS Safety Report 6369250-1 (Version None)
Quarter: 2009Q3

REPORT INFORMATION
  Report Type: 
  Country: None (occurrence: None)
  Receive Date: 20090916
  Receipt Date: 20090908
  Transmission Date: 20100115
  Serious: Yes (Other)
  Sender: FDA-Public Use
  Company Number: ADR20222009

PATIENT
  Age: 28 Year
  Sex: Female

DRUGS (1)
  1. SERTRALINE HCL [Suspect]
     Indication: DEPRESSION
     Dosage: 50MG ORAL
     Route: 048
     Dates: start: 20080909, end: 20081003

REACTIONS (6)
  - ASTHMA [None]
  - CONDITION AGGRAVATED [None]
  - JOINT SWELLING [None]
  - PRURITUS [None]
  - RASH [None]
  - URTICARIA [None]
